FAERS Safety Report 24194250 (Version 1)
Quarter: 2024Q3

REPORT INFORMATION
  Report Type: Report from Study
  Country: ZA (occurrence: ZA)
  Receive Date: 20240809
  Receipt Date: 20240809
  Transmission Date: 20241017
  Serious: Yes (Death, Hospitalization)
  Sender: ABBVIE
  Company Number: ZA-ABBVIE-5871402

PATIENT
  Sex: Female

DRUGS (1)
  1. OZURDEX [Suspect]
     Active Substance: DEXAMETHASONE
     Indication: Diabetic eye disease
     Dosage: TIME INTERVAL: AS NECESSARY: FREQUENCY EVERY 6 MONTHS?DEX 0.7MG INS (9632X)
     Route: 050

REACTIONS (2)
  - Death [Fatal]
  - Hospitalisation [Unknown]
